FAERS Safety Report 18147527 (Version 1)
Quarter: 2020Q3

REPORT INFORMATION
  Report Type: Spontaneous
  Country: US (occurrence: US)
  Receive Date: 20200813
  Receipt Date: 20200813
  Transmission Date: 20201103
  Serious: No
  Sender: FDA-Public Use
  Company Number: US-009507513-2008USA007694

PATIENT
  Age: 28 Year
  Sex: Female
  Weight: 47.2 kg

DRUGS (1)
  1. NEXPLANON [Suspect]
     Active Substance: ETONOGESTREL
     Dosage: 1 IMPLANT, LEFT ARM (THIN ARM)
     Route: 059
     Dates: start: 201811, end: 20200811

REACTIONS (3)
  - Implant site scar [Unknown]
  - Complication of device removal [Recovered/Resolved]
  - Surgery [Unknown]

NARRATIVE: CASE EVENT DATE: 20200811
